FAERS Safety Report 4989362-4 (Version None)
Quarter: 2006Q2

REPORT INFORMATION
  Report Type: 
  Country: None (occurrence: None)
  Receive Date: 20060426
  Receipt Date: 20060410
  Transmission Date: 20061013
  Serious: Yes (Death, Hospitalization)
  Sender: FDA-Public Use
  Company Number: US200604001521

PATIENT
  Age: 82 Year
  Sex: Female

DRUGS (2)
  1. FORTEO [Suspect]
     Indication: OSTEOPOROSIS
     Dates: start: 20050401
  2. FORTEO [Concomitant]

REACTIONS (4)
  - ARTERIOSCLEROSIS [None]
  - CONDITION AGGRAVATED [None]
  - GASTROINTESTINAL NECROSIS [None]
  - INTESTINAL OBSTRUCTION [None]
